FAERS Safety Report 25238796 (Version 1)
Quarter: 2025Q2

REPORT INFORMATION
  Report Type: Spontaneous
  Country: NL (occurrence: NL)
  Receive Date: 20250425
  Receipt Date: 20250425
  Transmission Date: 20250716
  Serious: Yes (Other)
  Sender: BANNER
  Company Number: None

PATIENT
  Age: 77 Year
  Sex: Male
  Weight: 96 kg

DRUGS (2)
  1. IBUPROFEN [Suspect]
     Active Substance: IBUPROFEN
     Indication: Epicondylitis
     Dosage: 3 X DAILY 600 MG FOR 14 DAYS. ON DAY 15: 60
     Route: 048
     Dates: start: 20250308, end: 20250322
  2. ASPIRIN [Concomitant]
     Active Substance: ASPIRIN
     Route: 048

REACTIONS (3)
  - Polyuria [Recovered/Resolved]
  - Constipation [Recovered/Resolved]
  - Atrial fibrillation [Not Recovered/Not Resolved]
